FAERS Safety Report 10231107 (Version 2)
Quarter: 2014Q2

REPORT INFORMATION
  Report Type: Report from Study
  Country: CA (occurrence: CA)
  Receive Date: 20140611
  Receipt Date: 20140611
  Transmission Date: 20141212
  Serious: Yes (Hospitalization)
  Sender: FDA-Public Use
  Company Number: CA-BRISTOL-MYERS SQUIBB COMPANY-19974724

PATIENT
  Age: 63 Year
  Sex: Female

DRUGS (5)
  1. ABATACEPT SUBQ INJECTION 125MG/ML [Suspect]
     Indication: RHEUMATOID ARTHRITIS
     Dosage: 1DF: 125 UNITS NOS, INTR 11DEC13
     Route: 058
  2. CELEBREX [Concomitant]
  3. HYDROCHLOROTHIAZIDE [Concomitant]
  4. METHOTREXATE [Concomitant]
  5. RAMIPRIL [Concomitant]

REACTIONS (2)
  - Arthropathy [Unknown]
  - Heart rate increased [Recovered/Resolved]
